FAERS Safety Report 10760759 (Version 2)
Quarter: 2015Q1

REPORT INFORMATION
  Report Type: Spontaneous
  Country: US (occurrence: None)
  Receive Date: 20150202
  Receipt Date: 20150219
  Transmission Date: 20150721
  Serious: Yes (Hospitalization, Other)
  Sender: FDA-Public Use
  Company Number: ADR-2015-00219

PATIENT
  Age: 56 Year
  Sex: Female

DRUGS (3)
  1. CLONIDINE. [Suspect]
     Active Substance: CLONIDINE
     Dosage: DOSE RATE: 130.08
  2. BACLOFEN INTRATHECAL [Suspect]
     Active Substance: BACLOFEN
     Indication: PAIN
     Dosage: ^2.168^
  3. MORPHINE INTRATHECAL [Suspect]
     Active Substance: MORPHINE

REACTIONS (6)
  - Pyrexia [None]
  - Implant site discharge [None]
  - Mental status changes [None]
  - Drug withdrawal syndrome [None]
  - Withdrawal syndrome [None]
  - Disorientation [None]
